FAERS Safety Report 9131868 (Version 1)
Quarter: 2013Q1

REPORT INFORMATION
  Report Type: Spontaneous
  Country: US (occurrence: US)
  Receive Date: 20130301
  Receipt Date: 20130301
  Transmission Date: 20140127
  Serious: Yes (Other)
  Sender: FDA-Public Use
  Company Number: US-ELI_LILLY_AND_COMPANY-US201302008124

PATIENT
  Sex: Male
  Weight: 104.31 kg

DRUGS (8)
  1. BYDUREON [Suspect]
     Indication: TYPE 2 DIABETES MELLITUS
     Dosage: 2 MG, WEEKLY (1/W)
     Route: 058
     Dates: start: 201211
  2. BYETTA [Suspect]
     Indication: TYPE 2 DIABETES MELLITUS
     Dosage: UNK
     Route: 058
  3. METFORMIN [Concomitant]
     Indication: TYPE 2 DIABETES MELLITUS
     Dosage: 1000 MG, BID
     Route: 048
  4. GLIPIZIDE [Concomitant]
     Indication: TYPE 2 DIABETES MELLITUS
     Dosage: 5 MG, BID
     Route: 048
  5. OMEPRAZOLE [Concomitant]
     Dosage: 40 MG, QD
     Route: 048
  6. CRESTOR [Concomitant]
     Dosage: 10 MG, QD
     Route: 048
  7. NEXIUM                                  /USA/ [Concomitant]
     Route: 048
  8. LISINOPRIL                              /USA/ [Concomitant]
     Indication: PROPHYLAXIS
     Dosage: 5 MG, QD
     Route: 048

REACTIONS (24)
  - Gallbladder disorder [Unknown]
  - Appendicitis [Unknown]
  - Vomiting projectile [Not Recovered/Not Resolved]
  - Splenomegaly [Unknown]
  - Abdominal pain [Not Recovered/Not Resolved]
  - Gastrointestinal tract mucosal discolouration [Unknown]
  - Blood glucose increased [Unknown]
  - Hypophagia [Unknown]
  - Irritability [Not Recovered/Not Resolved]
  - Hunger [Not Recovered/Not Resolved]
  - Heart rate increased [Not Recovered/Not Resolved]
  - Confusional state [Not Recovered/Not Resolved]
  - Hiccups [Not Recovered/Not Resolved]
  - Mood altered [Not Recovered/Not Resolved]
  - Weight decreased [Unknown]
  - Somnolence [Not Recovered/Not Resolved]
  - Dizziness [Not Recovered/Not Resolved]
  - Headache [Not Recovered/Not Resolved]
  - Fatigue [Not Recovered/Not Resolved]
  - Abdominal pain upper [Not Recovered/Not Resolved]
  - Injection site nodule [Not Recovered/Not Resolved]
  - Flatulence [Not Recovered/Not Resolved]
  - Constipation [Not Recovered/Not Resolved]
  - Vomiting [Not Recovered/Not Resolved]
